FAERS Safety Report 26185510 (Version 1)
Quarter: 2025Q4

REPORT INFORMATION
  Report Type: Other
  Country: CA (occurrence: CA)
  Receive Date: 20251222
  Receipt Date: 20251222
  Transmission Date: 20260118
  Serious: Yes (Hospitalization, Other)
  Sender: ANI
  Company Number: CA-ANIPHARMA-035575

PATIENT
  Age: 37 Year
  Sex: Female

DRUGS (1)
  1. POLYETHYLENE GLYCOL 3350 [Suspect]
     Active Substance: POLYETHYLENE GLYCOL 3350
     Indication: Product used for unknown indication
     Dosage: INGESTED
     Route: 048

REACTIONS (1)
  - Anaphylactic reaction [Unknown]
